FAERS Safety Report 5070886-9 (Version None)
Quarter: 2006Q3

REPORT INFORMATION
  Report Type: 
  Country: None (occurrence: None)
  Receive Date: 20060714
  Receipt Date: 20060420
  Transmission Date: 20061208
  Serious: No
  Sender: FDA-Public Use
  Company Number: 2006SP001786

PATIENT
  Age: 67 Year
  Sex: Female
  Weight: 60.3284 kg

DRUGS (4)
  1. LUNESTA [Suspect]
     Indication: INSOMNIA
     Dosage: 2 MG;HS;ORAL
     Route: 048
     Dates: start: 20051101
  2. HYZAAR [Concomitant]
  3. PROCARDIA [Concomitant]
  4. SYNTHROID [Concomitant]

REACTIONS (1)
  - DRUG EFFECT DECREASED [None]
